FAERS Safety Report 24874516 (Version 1)
Quarter: 2025Q1

REPORT INFORMATION
  Report Type: Spontaneous
  Country: CA (occurrence: CA)
  Receive Date: 20250122
  Receipt Date: 20250122
  Transmission Date: 20250409
  Serious: Yes (Hospitalization, Other)
  Sender: MYLAN
  Company Number: CA-MYLANLABS-2025M1005219

PATIENT
  Age: 43 Year
  Sex: Female
  Weight: 70 kg

DRUGS (13)
  1. CLOZAPINE [Suspect]
     Active Substance: CLOZAPINE
     Indication: Schizoaffective disorder
     Dosage: 125.0 MILLIGRAM, QD
     Route: 065
  2. ACETAMINOPHEN [Concomitant]
     Active Substance: ACETAMINOPHEN
     Route: 065
  3. ATROPINE [Concomitant]
     Active Substance: ATROPINE
     Route: 065
  4. CLONAZEPAM [Concomitant]
     Active Substance: CLONAZEPAM
     Route: 065
  5. ESCITALOPRAM [Concomitant]
     Active Substance: ESCITALOPRAM OXALATE
     Route: 065
  6. GAVISCON [Concomitant]
     Active Substance: ALUMINUM HYDROXIDE\MAGNESIUM CARBONATE
     Route: 065
  7. LOXAPINE [Concomitant]
     Active Substance: LOXAPINE
     Route: 065
  8. NICOTINE [Concomitant]
     Active Substance: NICOTINE
     Route: 065
  9. NICOTINE POLACRILEX [Concomitant]
     Active Substance: NICOTINE
     Route: 065
  10. OLANZAPINE [Concomitant]
     Active Substance: OLANZAPINE
     Route: 065
  11. POLYETHYLENE GLYCOL [Concomitant]
     Active Substance: POLYETHYLENE GLYCOL
     Route: 065
  12. SENNA [Concomitant]
     Active Substance: SENNOSIDES
     Route: 065
  13. NICOTINE [Concomitant]
     Active Substance: NICOTINE
     Route: 062

REACTIONS (3)
  - Myocarditis [Recovered/Resolved]
  - Cardiovascular symptom [Recovered/Resolved]
  - Off label use [Unknown]
